FAERS Safety Report 14413460 (Version 4)
Quarter: 2018Q1

REPORT INFORMATION
  Report Type: Report from Study
  Country: US (occurrence: US)
  Receive Date: 20180119
  Receipt Date: 20180309
  Transmission Date: 20180509
  Serious: Yes (Other)
  Sender: FDA-Public Use
  Company Number: US-SAOL THERAPEUTICS-2017SAO03422

PATIENT
  Age: 76 Year
  Sex: Female
  Weight: 87.75 kg

DRUGS (10)
  1. COMPOUNDED BACLOFEN [Suspect]
     Active Substance: BACLOFEN
     Dosage: 43.99 ?G, \DAY
     Route: 037
     Dates: start: 20171025
  2. BUPIVACAINE. [Suspect]
     Active Substance: BUPIVACAINE
     Dosage: 7.927 MG, \DAY - MAX
     Route: 037
  3. HYDROCODONE [Concomitant]
     Active Substance: HYDROCODONE
     Route: 048
  4. DILAUDID [Suspect]
     Active Substance: HYDROMORPHONE HYDROCHLORIDE
     Dosage: 1.585 MG, \DAY - MAX
     Route: 037
     Dates: start: 20171025
  5. DILAUDID [Suspect]
     Active Substance: HYDROMORPHONE HYDROCHLORIDE
     Dosage: 0.880 MG, \DAY
     Route: 037
     Dates: start: 20171127
  6. COMPOUNDED BACLOFEN [Suspect]
     Active Substance: BACLOFEN
     Dosage: 44.01 ?G, \DAY
     Route: 037
     Dates: start: 20171127
  7. DILAUDID [Suspect]
     Active Substance: HYDROMORPHONE HYDROCHLORIDE
     Dosage: 0.8798 MG, \DAY
     Route: 037
     Dates: start: 20171025
  8. COMPOUNDED BACLOFEN [Suspect]
     Active Substance: BACLOFEN
     Dosage: 79.27 ?G, \DAY - MAX
     Route: 037
     Dates: start: 20171025
  9. BUPIVACAINE. [Suspect]
     Active Substance: BUPIVACAINE
     Dosage: 4.399 MG, \DAY
     Route: 037
     Dates: start: 20171025
  10. BUPIVACAINE. [Suspect]
     Active Substance: BUPIVACAINE
     Dosage: 4.401 MG, \DAY
     Route: 037
     Dates: start: 20171127

REACTIONS (16)
  - Implant site haematoma [Recovered/Resolved]
  - Device kink [Recovered/Resolved]
  - Pruritus generalised [Unknown]
  - Anxiety [Recovered/Resolved]
  - Hyperhidrosis [Unknown]
  - Nausea [Unknown]
  - Pain [Recovered/Resolved]
  - Implant site erythema [Unknown]
  - Drug ineffective for unapproved indication [Recovered/Resolved]
  - Device infusion issue [Recovered/Resolved]
  - Drug withdrawal syndrome [Recovered/Resolved]
  - Implant site discharge [Unknown]
  - Implant site mass [Unknown]
  - Malaise [Unknown]
  - Arthralgia [Unknown]
  - Hyperaesthesia [Recovered/Resolved]

NARRATIVE: CASE EVENT DATE: 20171129
